FAERS Safety Report 8852706 (Version 2)
Quarter: 2013Q1

REPORT INFORMATION
  Report Type: Spontaneous
  Country: BR (occurrence: BR)
  Receive Date: 20121022
  Receipt Date: 20130115
  Transmission Date: 20140127
  Serious: Yes (Death, Other)
  Sender: FDA-Public Use
  Company Number: PHHY2012BR094424

PATIENT
  Sex: Female

DRUGS (1)
  1. DIOVAN [Suspect]
     Indication: BLOOD PRESSURE
     Dosage: 1 DF, DAILY
     Route: 048

REACTIONS (1)
  - Cardiac arrest [Fatal]
